FAERS Safety Report 19384012 (Version 1)
Quarter: 2021Q2

REPORT INFORMATION
  Report Type: Other
  Country: US (occurrence: GB)
  Receive Date: 20210607
  Receipt Date: 20210607
  Transmission Date: 20210717
  Serious: Yes (Other)
  Sender: FDA-Public Use
  Company Number: GB-BRECKENRIDGE PHARMACEUTICAL, INC.-2112436

PATIENT

DRUGS (6)
  1. QUININE SULPHATE [Concomitant]
     Active Substance: QUININE SULFATE
  2. FUROSEMIDE. [Concomitant]
     Active Substance: FUROSEMIDE
  3. RAMIPRIL. [Concomitant]
     Active Substance: RAMIPRIL
  4. OMEPRAZOLE. [Suspect]
     Active Substance: OMEPRAZOLE
     Route: 048
  5. IBUPROFEN. [Suspect]
     Active Substance: IBUPROFEN
  6. PREGABALIN. [Concomitant]
     Active Substance: PREGABALIN

REACTIONS (9)
  - Dyspnoea [None]
  - Oropharyngeal pain [None]
  - Product label issue [None]
  - Throat irritation [None]
  - Dysgeusia [None]
  - Dysphonia [None]
  - Aphonia [None]
  - Retching [None]
  - Dysphagia [None]
